FAERS Safety Report 5127212-6 (Version None)
Quarter: 2006Q4

REPORT INFORMATION
  Report Type: 
  Country: None (occurrence: None)
  Receive Date: 20061009
  Receipt Date: 20061002
  Transmission Date: 20070319
  Serious: Yes (Death)
  Sender: FDA-Public Use
  Company Number: HQWYE450715JUN04

PATIENT
  Age: 55 Year
  Sex: Female
  Weight: 86.71 kg

DRUGS (4)
  1. PREMPRO [Suspect]
  2. MEDROXYPROGESTERONE [Suspect]
  3. PREMARIN [Suspect]
  4. PROVERA [Suspect]

REACTIONS (10)
  - ASCITES [None]
  - ATELECTASIS [None]
  - BREAST CANCER METASTATIC [None]
  - METASTASES TO BONE [None]
  - METASTASES TO LIVER [None]
  - METASTASES TO PLEURA [None]
  - METASTASES TO SKIN [None]
  - OESTROGEN RECEPTOR ASSAY POSITIVE [None]
  - PLEURAL EFFUSION [None]
  - PROGESTERONE RECEPTOR ASSAY POSITIVE [None]
